FAERS Safety Report 9470569 (Version 1)
Quarter: 2013Q3

REPORT INFORMATION
  Report Type: Spontaneous
  Country: US (occurrence: None)
  Receive Date: 20130820
  Receipt Date: 20130820
  Transmission Date: 20140515
  Serious: Yes (Hospitalization)
  Sender: FDA-Public Use
  Company Number: None

PATIENT
  Age: 73 Year
  Sex: Female
  Weight: 100.25 kg

DRUGS (7)
  1. COLCRYS [Suspect]
     Indication: GOUT
     Dosage: 1/2 TAB 3X DAILY 3X DAILY PO
     Route: 048
     Dates: start: 20130723, end: 20130724
  2. LANTUS [Concomitant]
  3. NOVOLOG INSULIN [Concomitant]
  4. CODEINE [Concomitant]
  5. ENAPLAPRIL [Concomitant]
  6. FUROSEMIDE [Concomitant]
  7. TYLENOL [Concomitant]

REACTIONS (2)
  - Diarrhoea [None]
  - Haemorrhage [None]
